FAERS Safety Report 8615179-5 (Version None)
Quarter: 2012Q3

REPORT INFORMATION
  Report Type: 
  Country: None (occurrence: None)
  Receive Date: 20120823
  Receipt Date: 20120816
  Transmission Date: 20120928
  Serious: Yes (Other)
  Sender: FDA-Public Use
  Company Number: CA-CELGENEUS-028-50794-12081947

PATIENT

DRUGS (1)
  1. VIDAZA [Suspect]
     Route: 065

REACTIONS (3)
  - DISEASE PROGRESSION [None]
  - TOXICITY TO VARIOUS AGENTS [None]
  - MYELODYSPLASTIC SYNDROME TRANSFORMATION [None]
